FAERS Safety Report 23275569 (Version 1)
Quarter: 2023Q4

REPORT INFORMATION
  Report Type: Spontaneous
  Country: US (occurrence: US)
  Receive Date: 20231208
  Receipt Date: 20231208
  Transmission Date: 20240110
  Serious: Yes (Hospitalization)
  Sender: FDA-Public Use
  Company Number: US-MYLANLABS-2023M1129142

PATIENT
  Age: 81 Year
  Sex: Female

DRUGS (1)
  1. ASCORBIC ACID [Suspect]
     Active Substance: ASCORBIC ACID
     Indication: Product used for unknown indication
     Dosage: UNK
     Route: 042

REACTIONS (4)
  - Laboratory test interference [Recovered/Resolved]
  - End stage renal disease [Unknown]
  - Renal tubular necrosis [Unknown]
  - Nephropathy toxic [Unknown]
